FAERS Safety Report 4342172-3 (Version None)
Quarter: 2004Q1

REPORT INFORMATION
  Report Type: 
  Country: None (occurrence: None)
  Receive Date: 20040329
  Receipt Date: 20031218
  Transmission Date: 20041129
  Serious: No
  Sender: FDA-Public Use
  Company Number: USA031255036

PATIENT
  Age: 11 Year
  Sex: Male
  Weight: 35 kg

DRUGS (1)
  1. STRATTERA [Suspect]
     Dosage: 25 MG/DAY
     Dates: start: 20030916

REACTIONS (7)
  - AGGRESSION [None]
  - DISTURBANCE IN ATTENTION [None]
  - HEADACHE [None]
  - INFLUENZA [None]
  - NASOPHARYNGITIS [None]
  - SOMNOLENCE [None]
  - WEIGHT INCREASED [None]
